FAERS Safety Report 18226880 (Version 1)
Quarter: 2020Q3

REPORT INFORMATION
  Report Type: Spontaneous
  Country: FR (occurrence: FR)
  Receive Date: 20200903
  Receipt Date: 20200903
  Transmission Date: 20201103
  Serious: Yes (Other)
  Sender: FDA-Public Use
  Company Number: FR-ACCORD-198576

PATIENT
  Age: 55 Year
  Sex: Male
  Weight: 72 kg

DRUGS (7)
  1. LEVOFOLINATE [Concomitant]
     Active Substance: LEVOLEUCOVORIN CALCIUM
     Route: 042
  2. IRINOTECAN ACCORD [Suspect]
     Active Substance: IRINOTECAN
     Indication: PANCREATIC CARCINOMA METASTATIC
     Dosage: 340 MG
     Route: 042
     Dates: start: 20200630, end: 20200630
  3. FLUOROURACIL PFIZER [Suspect]
     Active Substance: FLUOROURACIL
     Indication: PANCREATIC CARCINOMA METASTATIC
     Route: 042
     Dates: start: 20200630, end: 20200701
  4. ATROPINE. [Concomitant]
     Active Substance: ATROPINE
     Route: 058
  5. SOLU?MEDROL [Concomitant]
     Active Substance: METHYLPREDNISOLONE SODIUM SUCCINATE
     Route: 042
  6. ZOPHREN [Concomitant]
     Active Substance: ONDANSETRON
     Route: 042
  7. OXALIPLATIN ACCORD [Suspect]
     Active Substance: OXALIPLATIN
     Indication: PANCREATIC CARCINOMA METASTATIC
     Route: 042
     Dates: start: 20200630, end: 20200630

REACTIONS (2)
  - Off label use [Unknown]
  - Cholinergic syndrome [Recovered/Resolved]

NARRATIVE: CASE EVENT DATE: 20200630
